FAERS Safety Report 7250243-7 (Version None)
Quarter: 2011Q1

REPORT INFORMATION
  Report Type: 
  Country: None (occurrence: None)
  Receive Date: 20110128
  Receipt Date: 20110120
  Transmission Date: 20110831
  Serious: Yes (Death)
  Sender: FDA-Public Use
  Company Number: JP-BAYER-2010-005750

PATIENT
  Sex: Male
  Weight: 48 kg

DRUGS (4)
  1. NEXAVAR [Suspect]
     Indication: HEPATIC NEOPLASM MALIGNANT
     Dosage: 400 MG, QD
     Route: 048
     Dates: start: 20100917, end: 20100923
  2. TAKEPRON [Concomitant]
     Indication: REFLUX OESOPHAGITIS
     Dosage: DAILY DOSE 30 MG
     Route: 048
     Dates: start: 20100610, end: 20101225
  3. PASTARON [Concomitant]
     Indication: HYPERKERATOSIS
     Dosage: UNK
     Route: 061
     Dates: start: 20100909, end: 20101215
  4. BARACLUDE [Concomitant]
     Indication: HEPATITIS B
     Dosage: DAILY DOSE .5 MG
     Route: 048
     Dates: start: 20100610, end: 20101225

REACTIONS (5)
  - BLOOD BILIRUBIN INCREASED [None]
  - ASPARTATE AMINOTRANSFERASE INCREASED [None]
  - LIVER DISORDER [None]
  - HEPATIC NEOPLASM MALIGNANT [None]
  - PLATELET COUNT DECREASED [None]
